FAERS Safety Report 4288745-8 (Version None)
Quarter: 2004Q1

REPORT INFORMATION
  Report Type: 
  Country: None (occurrence: None)
  Receive Date: 20040205
  Receipt Date: 20040123
  Transmission Date: 20041129
  Serious: Yes (Other)
  Sender: FDA-Public Use
  Company Number: 2004005766

PATIENT
  Age: 8 Month
  Sex: Male

DRUGS (7)
  1. SILDENAFIL (SILDENAFIL) [Suspect]
     Indication: PULMONARY HYPERTENSION
     Dosage: INTRAVENOUS
     Route: 042
  2. OXYGEN (OXYGEN) [Concomitant]
  3. AMPHOTERICIN B [Concomitant]
  4. FLUCYTOSINE (FLUCYTOSINE) [Concomitant]
  5. NITRIC OXIDE (NITRIC OXIDE) [Concomitant]
  6. CIPROFLOXACIN [Concomitant]
  7. METRONIDAZOLE [Concomitant]

REACTIONS (6)
  - ALANINE AMINOTRANSFERASE INCREASED [None]
  - DISEASE PROGRESSION [None]
  - NEONATAL DISORDER [None]
  - NEOVASCULARISATION [None]
  - RETINAL ISCHAEMIA [None]
  - RETINOPATHY OF PREMATURITY [None]
